FAERS Safety Report 17775856 (Version 4)
Quarter: 2021Q2

REPORT INFORMATION
  Report Type: Report from Study
  Country: US (occurrence: US)
  Receive Date: 20200513
  Receipt Date: 20210625
  Transmission Date: 20210716
  Serious: Yes (Other)
  Sender: FDA-Public Use
  Company Number: US-ACADIA PHARMACEUTICALS INC.-ACA-2019-012792

PATIENT
  Sex: Female
  Weight: 57 kg

DRUGS (11)
  1. PERCOCET [Concomitant]
     Active Substance: ACETAMINOPHEN\OXYCODONE HYDROCHLORIDE
     Dosage: 5 MG?325 MG QD
     Route: 048
  2. MUCINEX [Concomitant]
     Active Substance: GUAIFENESIN
     Dosage: 600 MILLIGRAM AS NEEDED
     Dates: start: 20200320
  3. STOOL SOFTENER (DOCUSATE) [Concomitant]
     Active Substance: DOCUSATE
     Dosage: 100 MILLIGRAM, BID
     Route: 048
  4. LEVOTHYROXINE SODIUM. [Concomitant]
     Active Substance: LEVOTHYROXINE SODIUM
     Dosage: 100 MCG TABLET QD
     Route: 048
     Dates: start: 20201006
  5. NUPLAZID [Suspect]
     Active Substance: PIMAVANSERIN TARTRATE
     Indication: DELUSION
  6. MIRTAZAPINE. [Concomitant]
     Active Substance: MIRTAZAPINE
     Dosage: 15 MILLIGRAM, QD
     Route: 048
  7. PROLIA [Concomitant]
     Active Substance: DENOSUMAB
     Dosage: 6O MG/ML SUBCUTANEOUS SYRINGE
     Route: 058
  8. SERTRALINE [Concomitant]
     Active Substance: SERTRALINE HYDROCHLORIDE
     Dosage: 100 MILLIGRAM, QD
     Dates: start: 20200116
  9. TRAMADOL. [Concomitant]
     Active Substance: TRAMADOL
     Dosage: 50 MILLIGRAM, TID AS NEEDED
     Route: 048
  10. NUPLAZID [Suspect]
     Active Substance: PIMAVANSERIN TARTRATE
     Indication: PARKINSON^S DISEASE PSYCHOSIS
     Dosage: 68 MG, QD
     Route: 048
     Dates: start: 2019
  11. NUPLAZID [Suspect]
     Active Substance: PIMAVANSERIN TARTRATE
     Indication: HALLUCINATION
     Dosage: 34 MG, QD
     Route: 048
     Dates: start: 202004

REACTIONS (5)
  - Accidental overdose [Unknown]
  - Fall [Unknown]
  - Upper limb fracture [Unknown]
  - Fall [Unknown]
  - Joint injury [Not Recovered/Not Resolved]

NARRATIVE: CASE EVENT DATE: 2019
